FAERS Safety Report 6136756-X (Version None)
Quarter: 2009Q1

REPORT INFORMATION
  Report Type: 
  Country: None (occurrence: None)
  Receive Date: 20090330
  Receipt Date: 20090324
  Transmission Date: 20090719
  Serious: Yes (Other)
  Sender: FDA-Public Use
  Company Number: US-ASTRAZENECA-2009UW07464

PATIENT
  Sex: Male
  Weight: 90.7 kg

DRUGS (2)
  1. SEROQUEL [Suspect]
     Route: 048
  2. SEROQUEL [Suspect]
     Dosage: 100-200 MG PER DAY.
     Route: 048

REACTIONS (6)
  - AGRANULOCYTOSIS [None]
  - BLOOD BILIRUBIN INCREASED [None]
  - GUILLAIN-BARRE SYNDROME [None]
  - ILL-DEFINED DISORDER [None]
  - NEUTROPENIA [None]
  - WHITE BLOOD CELL COUNT DECREASED [None]
